FAERS Safety Report 16313324 (Version 1)
Quarter: 2019Q2

REPORT INFORMATION
  Report Type: Spontaneous
  Country: DE (occurrence: DE)
  Receive Date: 20190515
  Receipt Date: 20190515
  Transmission Date: 20190711
  Serious: Yes (Hospitalization)
  Sender: FDA-Public Use
  Company Number: DE-BAUSCH-BL-2019-014027

PATIENT
  Age: 74 Year
  Sex: Female

DRUGS (3)
  1. JANUVIA [Concomitant]
     Active Substance: SITAGLIPTIN PHOSPHATE
     Indication: TYPE 2 DIABETES MELLITUS
     Route: 065
  2. LEVEMIR [Concomitant]
     Active Substance: INSULIN DETEMIR
     Indication: TYPE 2 DIABETES MELLITUS
     Route: 065
  3. METFORMIN HYDROCHLORIDE. [Suspect]
     Active Substance: METFORMIN HYDROCHLORIDE
     Indication: TYPE 2 DIABETES MELLITUS
     Route: 065

REACTIONS (13)
  - Lactic acidosis [Unknown]
  - Vomiting [Unknown]
  - Shock [Unknown]
  - Nausea [Unknown]
  - Toxicity to various agents [Unknown]
  - Bradycardia [Unknown]
  - Loss of consciousness [Unknown]
  - Acute kidney injury [Unknown]
  - Hypoxia [Unknown]
  - Dyspnoea [Unknown]
  - Cardiac arrest [Unknown]
  - Hypoglycaemia [Unknown]
  - Hypothermia [Unknown]
